FAERS Safety Report 8610398-6 (Version None)
Quarter: 2012Q3

REPORT INFORMATION
  Report Type: 
  Country: None (occurrence: None)
  Receive Date: 20120822
  Receipt Date: 20120820
  Transmission Date: 20120928
  Serious: Yes (Other)
  Sender: FDA-Public Use
  Company Number: PHEH2012US014572

PATIENT
  Sex: Female
  Weight: 77.098 kg

DRUGS (11)
  1. XANAX [Concomitant]
     Dosage: UNK UKN, UNK
  2. PERCOCET [Concomitant]
     Dosage: UNK UKN, UNK
  3. CLARITIN [Concomitant]
     Dosage: UNK UKN, UNK
  4. NEXIUM [Concomitant]
     Dosage: UNK UKN, UNK
  5. LEVOTHYROXINE SODIUM [Concomitant]
     Dosage: UNK UKN, UNK
  6. PINDOLOL [Concomitant]
     Dosage: UNK UKN, UNK
  7. VITAMIN D [Concomitant]
     Dosage: UNK UKN, UNK
  8. RECLAST [Suspect]
     Indication: OSTEOPOROSIS
     Dosage: ONCE A YEAR
     Route: 042
     Dates: start: 20120719
  9. COLACE [Concomitant]
     Dosage: UNK UKN, UNK
  10. MIDODRINE HYDROCHLORIDE [Concomitant]
     Dosage: UNK UKN, UNK
  11. CALCIUM [Concomitant]
     Dosage: UNK UKN, UNK

REACTIONS (10)
  - CONVULSION [None]
  - INFLUENZA LIKE ILLNESS [None]
  - PAIN [None]
  - PAIN IN EXTREMITY [None]
  - THROAT IRRITATION [None]
  - BONE PAIN [None]
  - ARTHRALGIA [None]
  - NAUSEA [None]
  - POSTURAL ORTHOSTATIC TACHYCARDIA SYNDROME [None]
  - JOINT SWELLING [None]
